FAERS Safety Report 7232750-6 (Version None)
Quarter: 2011Q1

REPORT INFORMATION
  Report Type: 
  Country: None (occurrence: None)
  Receive Date: 20110119
  Receipt Date: 20101129
  Transmission Date: 20110831
  Serious: Yes (Hospitalization)
  Sender: FDA-Public Use
  Company Number: US-BAYER-201036826NA

PATIENT
  Sex: Female
  Weight: 50 kg

DRUGS (9)
  1. YAZ [Suspect]
     Indication: PRODUCT USED FOR UNKNOWN INDICATION
  2. YASMIN [Suspect]
     Indication: DYSMENORRHOEA
     Dosage: UNK UNK, QD
     Route: 048
     Dates: start: 20040407
  3. YASMIN [Suspect]
     Indication: CONTRACEPTION
  4. DROSPIRENONE AND ETHINYL ESTRADIOL [Suspect]
     Indication: DYSMENORRHOEA
     Dosage: UNK
  5. IBUPROFEN [Concomitant]
     Indication: HEADACHE
     Dosage: TOOK OFTEN
     Dates: start: 19990101
  6. DROSPIRENONE AND ETHINYL ESTRADIOL [Suspect]
     Indication: CONTRACEPTION
  7. DROSPIRENONE AND ETHINYL ESTRADIOL [Suspect]
     Indication: MENSTRUAL CYCLE MANAGEMENT
  8. IBUPROFEN [Concomitant]
     Indication: MUSCLE SPASMS
  9. YASMIN [Suspect]
     Indication: MENSTRUAL CYCLE MANAGEMENT
     Dosage: UNK
     Dates: start: 20090401

REACTIONS (2)
  - GALLBLADDER DISORDER [None]
  - CHEST PAIN [None]
